FAERS Safety Report 13092166 (Version 1)
Quarter: 2017Q1

REPORT INFORMATION
  Report Type: Spontaneous
  Country: AU (occurrence: AU)
  Receive Date: 20170106
  Receipt Date: 20170106
  Transmission Date: 20170428
  Serious: Yes (Other)
  Sender: FDA-Public Use
  Company Number: AU-009507513-1701AUS002969

PATIENT
  Age: 9 Year
  Sex: Male

DRUGS (2)
  1. SINGULAIR [Suspect]
     Active Substance: MONTELUKAST SODIUM
     Indication: FOOD ALLERGY
  2. SINGULAIR [Suspect]
     Active Substance: MONTELUKAST SODIUM
     Indication: ASTHMA
     Dosage: UNK
     Route: 048

REACTIONS (7)
  - Apparent death [Unknown]
  - Screaming [Unknown]
  - Aggression [Unknown]
  - Crying [Unknown]
  - Anaphylactic reaction [Unknown]
  - Insomnia [Recovering/Resolving]
  - Anxiety [Unknown]
